FAERS Safety Report 8702594 (Version 2)
Quarter: 2012Q4

REPORT INFORMATION
  Report Type: 
  Country: US (occurrence: US)
  Receive Date: 20120803
  Receipt Date: 20120906
  Transmission Date: 20130627
  Serious: Yes (Hospitalization)
  Sender: FDA-Public Use
  Company Number: US-B.I. PHARMACEUTICALS,INC./RIDGEFIELD-2012-BP-16688BP

PATIENT
  Age: 72 Year
  Sex: Female

DRUGS (3)
  1. TRADJENTA [Suspect]
     Indication: TYPE 2 DIABETES MELLITUS
     Dosage: 5 mg
     Route: 048
     Dates: start: 20120703, end: 20120718
  2. METFORMIN [Concomitant]
     Indication: DIABETES MELLITUS
     Dosage: 500 mg
     Dates: start: 2000
  3. GLYBURIDE/METFORMIN [Concomitant]
     Indication: DIABETES MELLITUS
     Dates: start: 2000

REACTIONS (1)
  - Pancreatitis acute [Recovered/Resolved]
